FAERS Safety Report 17763771 (Version 1)
Quarter: 2020Q2

REPORT INFORMATION
  Report Type: Spontaneous
  Country: ES (occurrence: ES)
  Receive Date: 20200510
  Receipt Date: 20200510
  Transmission Date: 20200714
  Serious: Yes (Hospitalization)
  Sender: FDA-Public Use
  Company Number: ES-CADILA HEALTHCARE LIMITED-ES-ZYDUS-029539

PATIENT

DRUGS (3)
  1. TRAMADOL. [Suspect]
     Active Substance: TRAMADOL
     Indication: NECK PAIN
     Dosage: 50 MILLIGRAM,(INTERVAL :8 HOURS)
     Route: 048
     Dates: start: 20180620, end: 20180622
  2. LEVONORGESTREL W/ETHINYLESTRADIOL [Concomitant]
     Active Substance: ETHINYL ESTRADIOL\LEVONORGESTREL
     Indication: HORMONAL CONTRACEPTION
     Dosage: 1 DOSAGE FORM,(INTERVAL :1 DAYS)
     Route: 048
     Dates: start: 20180526
  3. ANAOMI DIARIO 0,1 MG/0,02 MG COMPRIMIDOS RECUBIERTOS CON PEL CULA E... [Concomitant]
     Indication: HORMONAL CONTRACEPTION
     Dosage: 1 DOSAGE FORM,(INTERVAL :1 DAYS)
     Route: 048
     Dates: start: 20180526

REACTIONS (1)
  - Haematemesis [Recovered/Resolved]

NARRATIVE: CASE EVENT DATE: 20180622
